FAERS Safety Report 5704445-9 (Version None)
Quarter: 2008Q2

REPORT INFORMATION
  Report Type: 
  Country: None (occurrence: None)
  Receive Date: 20080411
  Receipt Date: 20080411
  Transmission Date: 20081010
  Serious: Yes (Other)
  Sender: FDA-Public Use
  Company Number: None

PATIENT
  Sex: Male
  Weight: 69.9 kg

DRUGS (13)
  1. TAXOTERE [Suspect]
     Indication: PROSTATE CANCER METASTATIC
     Dosage: 75MG/M2 Q21 DAYS IV
     Route: 042
     Dates: start: 20080205, end: 20080408
  2. VERAPAMIL [Concomitant]
  3. LISINOPRIL [Concomitant]
  4. OMEPRAZOLE [Concomitant]
  5. CALTRATE D [Concomitant]
  6. LUPRON [Concomitant]
  7. DEXAMETHASONE TAB [Concomitant]
  8. PREDNISONE [Concomitant]
  9. ZOMETA [Concomitant]
  10. SUTENT [Concomitant]
  11. CRANBERRY PILLS [Concomitant]
  12. MEGA FLORA [Concomitant]
  13. SALINE SPRAY [Concomitant]

REACTIONS (6)
  - HEADACHE [None]
  - MUCOSAL INFLAMMATION [None]
  - NEUTROPENIA [None]
  - POOR VENOUS ACCESS [None]
  - PYREXIA [None]
  - STOMATITIS [None]
